FAERS Safety Report 17258251 (Version 2)
Quarter: 2020Q1

REPORT INFORMATION
  Report Type: Spontaneous
  Country: US (occurrence: US)
  Receive Date: 20200110
  Receipt Date: 20200124
  Transmission Date: 20200409
  Serious: Yes (Hospitalization)
  Sender: FDA-Public Use
  Company Number: US-HIKMA PHARMACEUTICALS USA INC.-US-H14001-19-06391

PATIENT
  Age: 62 Year
  Sex: Female
  Weight: 54.4 kg

DRUGS (36)
  1. IBRANCE [Suspect]
     Active Substance: PALBOCICLIB
     Indication: BREAST CANCER METASTATIC
     Route: 048
     Dates: start: 20190227, end: 20191212
  2. TUCATINIB [Suspect]
     Active Substance: TUCATINIB
     Indication: BREAST CANCER METASTATIC
     Route: 048
     Dates: start: 20190227, end: 20191212
  3. OMEPRAZOLE. [Concomitant]
     Active Substance: OMEPRAZOLE
     Indication: DYSPEPSIA
     Route: 065
     Dates: start: 20190408
  4. KYTRIL [Concomitant]
     Active Substance: GRANISETRON HYDROCHLORIDE
     Indication: NAUSEA
     Route: 065
     Dates: start: 20190320, end: 20190320
  5. CEFEPIME [Concomitant]
     Active Substance: CEFEPIME HYDROCHLORIDE
     Indication: SEPSIS
     Route: 065
     Dates: start: 20190513, end: 20190514
  6. PANTOPRAZOLE [Concomitant]
     Active Substance: PANTOPRAZOLE
     Indication: DYSPEPSIA
     Route: 065
     Dates: start: 20190513, end: 20190516
  7. TUCATINIB [Suspect]
     Active Substance: TUCATINIB
     Route: 048
     Dates: start: 20190520, end: 20191212
  8. ACETAMINOPHEN. [Concomitant]
     Active Substance: ACETAMINOPHEN
     Indication: SEPSIS
     Route: 065
     Dates: start: 20190320, end: 20190320
  9. GANCICLOVIR. [Concomitant]
     Active Substance: GANCICLOVIR
     Indication: CONJUNCTIVITIS
     Route: 065
     Dates: start: 20191009, end: 20191024
  10. TOBRAMYCIN AND DEXAMETHASONE [Concomitant]
     Active Substance: DEXAMETHASONE\TOBRAMYCIN
     Indication: CONJUNCTIVITIS
     Route: 065
     Dates: start: 20191129, end: 20191202
  11. LETROZOLE. [Suspect]
     Active Substance: LETROZOLE
     Indication: BREAST CANCER METASTATIC
     Route: 048
     Dates: start: 20190227
  12. FISH OIL [Concomitant]
     Active Substance: FISH OIL
     Indication: SUPPLEMENTATION THERAPY
     Route: 065
     Dates: start: 20190102, end: 20190226
  13. IMODIUM [Concomitant]
     Active Substance: LOPERAMIDE HYDROCHLORIDE
     Indication: DIARRHOEA
     Route: 065
     Dates: start: 20190307, end: 20190321
  14. LORAZEPAM. [Concomitant]
     Active Substance: LORAZEPAM
     Route: 065
     Dates: start: 20190320, end: 20190320
  15. ACETAMINOPHEN. [Concomitant]
     Active Substance: ACETAMINOPHEN
     Route: 065
     Dates: start: 20190513
  16. IBUPROFEN. [Concomitant]
     Active Substance: IBUPROFEN
     Indication: SEPSIS
     Route: 065
     Dates: start: 20190513, end: 20190513
  17. MELATONIN [Concomitant]
     Active Substance: MELATONIN
     Indication: SUPPLEMENTATION THERAPY
     Route: 065
     Dates: start: 20190515, end: 20190515
  18. VANCOMYCIN [Concomitant]
     Active Substance: VANCOMYCIN
     Route: 065
     Dates: start: 20190515, end: 20190515
  19. CEFTRIAXONE. [Concomitant]
     Active Substance: CEFTRIAXONE
     Indication: SEPSIS
     Route: 065
     Dates: start: 20190515, end: 20190516
  20. DEXAMETHASONE. [Suspect]
     Active Substance: DEXAMETHASONE
     Indication: EYE SWELLING
     Route: 048
     Dates: start: 20191107
  21. LACTATED RINGERS SOLUTION [Concomitant]
     Active Substance: CALCIUM CHLORIDE\POTASSIUM CHLORIDE\SODIUM CHLORIDE\SODIUM LACTATE
     Route: 065
     Dates: start: 20190514, end: 20190514
  22. CIPROFLOXACIN. [Concomitant]
     Active Substance: CIPROFLOXACIN
     Indication: PYREXIA
     Route: 065
     Dates: start: 20190719, end: 20190728
  23. LEVOFLOXACIN. [Concomitant]
     Active Substance: LEVOFLOXACIN
     Indication: URINARY TRACT INFECTION
     Route: 065
     Dates: start: 20190819, end: 20190909
  24. LACTATED RINGERS SOLUTION [Concomitant]
     Active Substance: CALCIUM CHLORIDE\POTASSIUM CHLORIDE\SODIUM CHLORIDE\SODIUM LACTATE
     Indication: SEPSIS
     Route: 065
     Dates: start: 20190513, end: 20190513
  25. NAPHAZOLINE HYDROCHLORIDE W/PHENIRAMINE [Concomitant]
     Indication: CONJUNCTIVITIS
     Route: 065
     Dates: start: 20190801, end: 20190909
  26. ACICLOVIR [Concomitant]
     Active Substance: ACYCLOVIR
     Indication: CONJUNCTIVITIS
     Route: 065
     Dates: start: 20191009, end: 20191023
  27. PREDNISONE ACETATE [Concomitant]
     Active Substance: PREDNISONE ACETATE
     Indication: CONJUNCTIVITIS
     Route: 065
     Dates: start: 20190910, end: 20191105
  28. LACTOBACILLUS ACIDOPHILUS [Concomitant]
     Active Substance: LACTOBACILLUS ACIDOPHILUS
     Indication: SUPPLEMENTATION THERAPY
     Route: 065
     Dates: start: 20190102, end: 20190516
  29. LOSARTAN. [Concomitant]
     Active Substance: LOSARTAN
     Indication: HYPERTENSION
     Route: 065
     Dates: start: 20190218
  30. ZOMETA [Concomitant]
     Active Substance: ZOLEDRONIC ACID
     Indication: METASTASES TO BONE
     Route: 065
     Dates: start: 20190211
  31. IMODIUM [Concomitant]
     Active Substance: LOPERAMIDE HYDROCHLORIDE
     Route: 065
     Dates: start: 20190408
  32. CANNABIDIOL [Concomitant]
     Active Substance: CANNABIDIOL
     Indication: AGEUSIA
     Route: 065
     Dates: start: 201809, end: 20191007
  33. LORAZEPAM. [Concomitant]
     Active Substance: LORAZEPAM
     Indication: NAUSEA
     Route: 065
     Dates: start: 20190320
  34. ACETAMINOPHEN. [Concomitant]
     Active Substance: ACETAMINOPHEN
     Route: 065
     Dates: start: 20190514, end: 20190515
  35. VANCOMYCIN [Concomitant]
     Active Substance: VANCOMYCIN
     Indication: SEPSIS
     Route: 065
     Dates: start: 20190514, end: 20190514
  36. TRAZODONE [Concomitant]
     Active Substance: TRAZODONE HYDROCHLORIDE
     Indication: SUPPLEMENTATION THERAPY
     Route: 065
     Dates: start: 20190515, end: 20190515

REACTIONS (10)
  - Asthenia [Unknown]
  - Chest pain [Unknown]
  - Tachycardia [Unknown]
  - Cystitis [Recovered/Resolved]
  - Lethargy [Unknown]
  - Urinary tract infection [Unknown]
  - Pyrexia [Unknown]
  - Dysuria [Unknown]
  - Sepsis [Unknown]
  - Myalgia [Unknown]

NARRATIVE: CASE EVENT DATE: 20191212
